FAERS Safety Report 16946445 (Version 1)
Quarter: 2019Q4

REPORT INFORMATION
  Report Type: Spontaneous
  Country: US (occurrence: US)
  Receive Date: 20191022
  Receipt Date: 20191022
  Transmission Date: 20200122
  Serious: No
  Sender: FDA-Public Use
  Company Number: US-DSJP-DSU-2019-138724

PATIENT

DRUGS (2)
  1. MORPHABOND ER [Suspect]
     Active Substance: MORPHINE SULFATE
     Dosage: UNK, ONCE EVERY 12HR
     Route: 048
  2. MORPHABOND ER [Suspect]
     Active Substance: MORPHINE SULFATE
     Indication: FRACTURE PAIN
     Dosage: 15 MG, BID
     Route: 048
     Dates: start: 20190708

REACTIONS (2)
  - Product residue present [Recovered/Resolved]
  - Drug ineffective [Unknown]

NARRATIVE: CASE EVENT DATE: 2019
